FAERS Safety Report 24679110 (Version 2)
Quarter: 2024Q4

REPORT INFORMATION
  Report Type: Spontaneous
  Country: NL (occurrence: NL)
  Receive Date: 20241129
  Receipt Date: 20241210
  Transmission Date: 20250114
  Serious: Yes (Life-Threatening, Hospitalization, Other)
  Sender: VALIDUS
  Company Number: NL-VALIDUS PHARMACEUTICALS LLC-NL-VDP-2024-019477

PATIENT

DRUGS (8)
  1. FUROSEMIDE [Suspect]
     Active Substance: FUROSEMIDE
     Indication: Cardiac failure
     Dosage: 40 MG, QD (1 UNIT 1 ? PER DAY)
     Route: 048
     Dates: start: 20210101
  2. ASPIRIN [Suspect]
     Active Substance: ASPIRIN
     Indication: Cardiovascular event prophylaxis
     Dosage: 80 MG, QD (1 UNIT 1 ? PER DAY)
     Route: 048
     Dates: start: 20210101
  3. ROSUVASTATIN [Suspect]
     Active Substance: ROSUVASTATIN
     Indication: Hypercholesterolaemia
     Dosage: 10 MG, QD (1 UNIT 1 ? PER DAY)
     Route: 048
     Dates: start: 20210101
  4. AMIODARONE HYDROCHLORIDE [Suspect]
     Active Substance: AMIODARONE HYDROCHLORIDE
     Indication: Cardiovascular event prophylaxis
     Dosage: 200 MG, QD (1 UNIT 1 ? PER DAY)
     Route: 048
     Dates: start: 20210101
  5. SPIRONOLACTONE [Concomitant]
     Active Substance: SPIRONOLACTONE
     Indication: Product used for unknown indication
     Dosage: 25 MG
     Route: 048
  6. PANTOPRAZOLE [Concomitant]
     Active Substance: PANTOPRAZOLE
     Indication: Product used for unknown indication
     Dosage: 20 MG
     Route: 048
  7. NOVATEC [LISINOPRIL] [Concomitant]
     Indication: Product used for unknown indication
     Dosage: 2.5 MG
     Route: 048
  8. DAPAGLIFLOZIN [Concomitant]
     Active Substance: DAPAGLIFLOZIN
     Indication: Product used for unknown indication
     Dosage: 10 MG
     Route: 048

REACTIONS (1)
  - Pancreatitis necrotising [Unknown]
